FAERS Safety Report 5357042-1 (Version None)
Quarter: 2007Q2

REPORT INFORMATION
  Report Type: 
  Country: None (occurrence: None)
  Receive Date: 20070612
  Receipt Date: 20070612
  Transmission Date: 20071010
  Serious: No
  Sender: FDA-Public Use
  Company Number: None

PATIENT
  Age: 75 Year
  Sex: Male
  Weight: 74.8435 kg

DRUGS (2)
  1. SPIRIVA [Suspect]
     Indication: CHRONIC OBSTRUCTIVE PULMONARY DISEASE
     Dosage: 1 INHALATION DAILY W/ INHALER
     Route: 055
     Dates: start: 20050601
  2. SPIRIVA [Suspect]
     Indication: EMPHYSEMA
     Dosage: 1 INHALATION DAILY W/ INHALER
     Route: 055
     Dates: start: 20050601

REACTIONS (1)
  - INCORRECT DOSE ADMINISTERED [None]
